FAERS Safety Report 7029141-X (Version None)
Quarter: 2010Q4

REPORT INFORMATION
  Report Type: 
  Country: None (occurrence: None)
  Receive Date: 20101005
  Receipt Date: 20100927
  Transmission Date: 20110411
  Serious: No
  Sender: FDA-Public Use
  Company Number: US-PFIZER INC-2010000547

PATIENT
  Sex: Female

DRUGS (3)
  1. LIPITOR [Suspect]
     Dosage: UNK
  2. ZOLOFT [Suspect]
     Dosage: 100 MG, 1.5 TABLET DAILY
     Route: 048
  3. WARFARIN SODIUM [Concomitant]
     Dosage: UNK

REACTIONS (1)
  - INFLUENZA [None]
